FAERS Safety Report 15285901 (Version 1)
Quarter: 2018Q3

REPORT INFORMATION
  Report Type: Spontaneous
  Country: GB (occurrence: GB)
  Receive Date: 20180816
  Receipt Date: 20180816
  Transmission Date: 20181010
  Serious: Yes (Other)
  Sender: FDA-Public Use
  Company Number: GB-TEVA-2018-GB-941510

PATIENT
  Age: 60 Year
  Sex: Female

DRUGS (5)
  1. AZATHIOPRINE. [Suspect]
     Active Substance: AZATHIOPRINE
     Dosage: DOSAGE FORM: UNSPECIFIED
     Route: 065
     Dates: start: 2015
  2. AZATHIOPRINE. [Suspect]
     Active Substance: AZATHIOPRINE
     Indication: CROHN^S DISEASE
     Dosage: DOSAGE FORM: UNSPECIFIED
     Route: 065
  3. METHOTREXATE. [Suspect]
     Active Substance: METHOTREXATE
     Indication: CROHN^S DISEASE
     Dosage: DOSAGE FORM: UNSPECIFIED
     Route: 065
  4. ALLOPURINOL. [Suspect]
     Active Substance: ALLOPURINOL
     Indication: CROHN^S DISEASE
     Dosage: DOSAGE FORM: UNSPECIFIED
     Route: 065
     Dates: start: 2015
  5. INFLIXIMAB, RECOMBINANT [Suspect]
     Active Substance: INFLIXIMAB
     Indication: CROHN^S DISEASE
     Dosage: DOSAGE FORM: LYOPHILIZED POWDER
     Route: 042
     Dates: start: 2008, end: 2017

REACTIONS (9)
  - Leukopenia [Unknown]
  - Intertrigo [Unknown]
  - Large intestine polyp [Unknown]
  - Skin papilloma [Unknown]
  - Hepatotoxicity [Unknown]
  - Off label use [Unknown]
  - Hepatic steatosis [Unknown]
  - Subcutaneous abscess [Unknown]
  - Crohn^s disease [Unknown]

NARRATIVE: CASE EVENT DATE: 2009
